FAERS Safety Report 14899375 (Version 1)
Quarter: 2018Q2

REPORT INFORMATION
  Report Type: Spontaneous
  Country: NO (occurrence: NO)
  Receive Date: 20180516
  Receipt Date: 20180516
  Transmission Date: 20180711
  Serious: No
  Sender: FDA-Public Use
  Company Number: NO-ALKEM LABORATORIES LIMITED-NO-ALKEM-2018-01164

PATIENT
  Sex: Female

DRUGS (1)
  1. OLANZAPINE. [Suspect]
     Active Substance: OLANZAPINE
     Indication: PRODUCT USED FOR UNKNOWN INDICATION
     Dosage: 10 MG, QD
     Route: 065

REACTIONS (1)
  - Exposure during pregnancy [Unknown]
